FAERS Safety Report 26063328 (Version 1)
Quarter: 2025Q4

REPORT INFORMATION
  Report Type: Spontaneous
  Country: BR (occurrence: BR)
  Receive Date: 20251119
  Receipt Date: 20251119
  Transmission Date: 20260118
  Serious: Yes (Other)
  Sender: CHEPLAPHARM
  Company Number: BR-BIOPAS-2025-BR-000247

PATIENT
  Sex: Female
  Weight: 56 kg

DRUGS (8)
  1. CLONAZEPAM [Suspect]
     Active Substance: CLONAZEPAM
     Indication: Insomnia
     Dosage: DAILY DOSE: 3 DROP
     Route: 048
     Dates: start: 2000, end: 202508
  2. CLONAZEPAM [Suspect]
     Active Substance: CLONAZEPAM
     Indication: Panic disorder
     Dosage: DAILY DOSE: 3 DROP
     Route: 048
     Dates: start: 2000, end: 202508
  3. CLONAZEPAM [Suspect]
     Active Substance: CLONAZEPAM
     Indication: Generalised anxiety disorder
     Dosage: DAILY DOSE: 3 DROP
     Route: 048
     Dates: start: 2000, end: 202508
  4. CLONAZEPAM [Suspect]
     Active Substance: CLONAZEPAM
     Indication: Insomnia
     Dosage: DAILY DOSE: 15 DROP
     Route: 048
     Dates: end: 202508
  5. CLONAZEPAM [Suspect]
     Active Substance: CLONAZEPAM
     Indication: Panic disorder
     Dosage: DAILY DOSE: 15 DROP
     Route: 048
     Dates: end: 202508
  6. CLONAZEPAM [Suspect]
     Active Substance: CLONAZEPAM
     Indication: Generalised anxiety disorder
     Dosage: DAILY DOSE: 15 DROP
     Route: 048
     Dates: end: 202508
  7. SYNTHROID [Concomitant]
     Active Substance: LEVOTHYROXINE SODIUM
     Indication: Thyroid disorder
     Dosage: 1 TABLET TWICE A DAY?DAILY DOSE: 150 MICROGRAM
     Route: 048
     Dates: start: 1997
  8. Venlafaxina actavis [Concomitant]
     Indication: Perinatal depression
     Dosage: 2 TABLETS DAILY?DAILY DOSE: 150 MILLIGRAM
     Route: 048
     Dates: start: 1997

REACTIONS (6)
  - Diabetes mellitus [Not Recovered/Not Resolved]
  - Hypertension [Not Recovered/Not Resolved]
  - Weight decreased [Not Recovered/Not Resolved]
  - Tooth discolouration [Unknown]
  - Product availability issue [Unknown]
  - Therapy interrupted [Unknown]

NARRATIVE: CASE EVENT DATE: 20020101
